FAERS Safety Report 5323663-5 (Version None)
Quarter: 2007Q2

REPORT INFORMATION
  Report Type: 
  Country: None (occurrence: None)
  Receive Date: 20070507
  Receipt Date: 20070424
  Transmission Date: 20071010
  Serious: Yes (Other)
  Sender: FDA-Public Use
  Company Number: 2007SP004613

PATIENT
  Age: 50 Year
  Sex: Female

DRUGS (3)
  1. VIRAFERONPEG [Suspect]
     Indication: HEPATITIS C
     Dosage: SEE IMAGE
     Dates: start: 20061001, end: 20070101
  2. VIRAFERONPEG [Suspect]
     Indication: HEPATITIS C
     Dosage: SEE IMAGE
     Dates: start: 20070101
  3. REBETOL [Suspect]
     Indication: HEPATITIS C
     Dosage: 800 MG; ; PO
     Route: 048
     Dates: start: 20061001

REACTIONS (4)
  - DEPRESSION [None]
  - HEPATIC FIBROSIS [None]
  - PLATELET COUNT DECREASED [None]
  - WEIGHT DECREASED [None]
